FAERS Safety Report 8377416-4 (Version None)
Quarter: 2012Q2

REPORT INFORMATION
  Report Type: 
  Country: None (occurrence: None)
  Receive Date: 20120522
  Receipt Date: 20120514
  Transmission Date: 20120825
  Serious: Yes (Other)
  Sender: FDA-Public Use
  Company Number: US-ROCHE-1070209

PATIENT

DRUGS (2)
  1. TARCEVA [Suspect]
     Indication: HEPATIC NEOPLASM MALIGNANT
     Route: 048
  2. AVASTIN [Suspect]
     Indication: HEPATIC NEOPLASM MALIGNANT
     Route: 042

REACTIONS (20)
  - DIARRHOEA [None]
  - PROTEINURIA [None]
  - POSTERIOR REVERSIBLE ENCEPHALOPATHY SYNDROME [None]
  - ACNE [None]
  - PALMAR-PLANTAR ERYTHRODYSAESTHESIA SYNDROME [None]
  - THROMBOCYTOPENIA [None]
  - MUCOSAL INFLAMMATION [None]
  - FATIGUE [None]
  - VOMITING [None]
  - TRANSAMINASES INCREASED [None]
  - HYPERBILIRUBINAEMIA [None]
  - UPPER GASTROINTESTINAL HAEMORRHAGE [None]
  - DECREASED APPETITE [None]
  - LOWER GASTROINTESTINAL HAEMORRHAGE [None]
  - WOUND INFECTION [None]
  - HYPERTENSION [None]
  - CONSTIPATION [None]
  - NAUSEA [None]
  - HYPERKALAEMIA [None]
  - NAIL DISORDER [None]
